FAERS Safety Report 5496143-4 (Version None)
Quarter: 2007Q4

REPORT INFORMATION
  Report Type: 
  Country: None (occurrence: None)
  Receive Date: 20071018
  Receipt Date: 20070502
  Transmission Date: 20080405
  Serious: Yes (Other)
  Sender: FDA-Public Use
  Company Number: 2007036535

PATIENT
  Age: 27 Year
  Sex: Male

DRUGS (1)
  1. NEURONTIN [Suspect]
     Indication: BACK PAIN
     Dosage: 300 MG
     Dates: start: 20010601

REACTIONS (3)
  - CARDIAC DISORDER [None]
  - SLEEP APNOEA SYNDROME [None]
  - SUICIDE ATTEMPT [None]
